FAERS Safety Report 24424997 (Version 1)
Quarter: 2024Q4

REPORT INFORMATION
  Report Type: Report from Study
  Country: US (occurrence: US)
  Receive Date: 20241010
  Receipt Date: 20241010
  Transmission Date: 20250115
  Serious: No
  Sender: SUNOVION
  Company Number: US-SUMITOMO PHARMA SWITZERLAND GMBH-2024SPA003273

PATIENT

DRUGS (3)
  1. ORGOVYX [Suspect]
     Active Substance: RELUGOLIX
     Indication: Prostate cancer
     Dosage: 360 MG, SINGLE
     Route: 048
     Dates: start: 20230902, end: 20230902
  2. ORGOVYX [Suspect]
     Active Substance: RELUGOLIX
     Dosage: 240 MG, QD
     Route: 048
     Dates: start: 20230903
  3. ERLEADA [Concomitant]
     Active Substance: APALUTAMIDE
     Indication: Prostate cancer
     Dosage: 240 MG
     Route: 065
     Dates: start: 20230902

REACTIONS (2)
  - SARS-CoV-2 test positive [Unknown]
  - Incorrect dose administered [Unknown]
